FAERS Safety Report 5929814-3 (Version None)
Quarter: 2008Q3

REPORT INFORMATION
  Report Type: 
  Country: None (occurrence: None)
  Receive Date: 20080930
  Receipt Date: 20080423
  Transmission Date: 20090109
  Serious: Yes (Death)
  Sender: FDA-Public Use
  Company Number: 170591USA

PATIENT
  Age: 25 Year
  Sex: Male

DRUGS (4)
  1. FLUOXETINE HYDROCHLORIDE [Suspect]
     Indication: DEPRESSION
     Dosage: 20 MG (20 MG,1 IN 1 D),ORAL
     Route: 048
     Dates: start: 20051101
  2. FLUOXETINE HYDROCHLORIDE [Suspect]
     Indication: PARANOIA
     Dosage: 20 MG (20 MG,1 IN 1 D),ORAL
     Route: 048
     Dates: start: 20051101
  3. OLANZAPINE [Suspect]
     Indication: DEPRESSION
     Dosage: QHS (15 MG),ORAL
     Route: 048
     Dates: start: 20040401
  4. OLANZAPINE [Suspect]
     Indication: PARANOIA
     Dosage: QHS (15 MG),ORAL
     Route: 048
     Dates: start: 20040401

REACTIONS (3)
  - CEREBRAL ISCHAEMIA [None]
  - COMPLETED SUICIDE [None]
  - CONVULSION [None]
